FAERS Safety Report 6074306-7 (Version None)
Quarter: 2009Q1

REPORT INFORMATION
  Report Type: 
  Country: None (occurrence: None)
  Receive Date: 20090211
  Receipt Date: 20090206
  Transmission Date: 20090719
  Serious: Yes (Hospitalization)
  Sender: FDA-Public Use
  Company Number: US-ROXANE LABORATORIES, INC.-2009-RO-00131RO

PATIENT
  Age: 77 Year
  Sex: Male

DRUGS (4)
  1. PREDNISONE [Suspect]
     Indication: ECZEMA
     Route: 048
  2. SYNTHROID [Concomitant]
     Dosage: 100MCG
  3. OMEGA 3 OIL [Concomitant]
  4. CALCIUM [Concomitant]

REACTIONS (4)
  - ADRENAL DISORDER [None]
  - BLISTER [None]
  - PRURITUS [None]
  - RASH [None]
